FAERS Safety Report 8176804-9 (Version None)
Quarter: 2012Q1

REPORT INFORMATION
  Report Type: 
  Country: None (occurrence: None)
  Receive Date: 20120228
  Receipt Date: 20120217
  Transmission Date: 20120608
  Serious: Yes (Other)
  Sender: FDA-Public Use
  Company Number: AUR-APL-2012-00873

PATIENT
  Age: 58 Year
  Sex: Female

DRUGS (2)
  1. BENDROFLUAZIDE (BENDROFLUMETHIAZIDE) [Concomitant]
  2. AMLODIPINE [Suspect]
     Indication: PRODUCT USED FOR UNKNOWN INDICATION

REACTIONS (3)
  - LINEAR IGA DISEASE [None]
  - GLOBULINS INCREASED [None]
  - ALANINE AMINOTRANSFERASE INCREASED [None]
